FAERS Safety Report 24734545 (Version 2)
Quarter: 2024Q4

REPORT INFORMATION
  Report Type: Spontaneous
  Country: US (occurrence: US)
  Receive Date: 20241214
  Receipt Date: 20241224
  Transmission Date: 20250114
  Serious: Yes (Other)
  Sender: JOHNSON AND JOHNSON
  Company Number: US-MLMSERVICE-20241125-PI270631-00306-1

PATIENT
  Age: 3 Decade
  Sex: Female

DRUGS (12)
  1. REMICADE [Suspect]
     Active Substance: INFLIXIMAB
     Indication: Immunosuppressant drug therapy
     Route: 041
  2. REMICADE [Suspect]
     Active Substance: INFLIXIMAB
     Indication: Myocarditis
  3. PREDNISONE [Suspect]
     Active Substance: PREDNISONE
     Indication: Myocarditis
     Dosage: HIGH-DOSE IMMUNOSUPPRESSION
     Route: 065
  4. PREDNISONE [Suspect]
     Active Substance: PREDNISONE
  5. TACROLIMUS [Suspect]
     Active Substance: TACROLIMUS
     Indication: Myocarditis
     Dosage: HIGH-DOSE IMMUNOSUPPRESSION
     Route: 065
  6. TACROLIMUS [Suspect]
     Active Substance: TACROLIMUS
  7. TACROLIMUS [Suspect]
     Active Substance: TACROLIMUS
  8. TACROLIMUS [Suspect]
     Active Substance: TACROLIMUS
     Route: 065
  9. MYCOPHENOLIC ACID [Suspect]
     Active Substance: MYCOPHENOLIC ACID
     Indication: Immunosuppressant drug therapy
     Route: 065
  10. SOLU-MEDROL [Suspect]
     Active Substance: METHYLPREDNISOLONE SODIUM SUCCINATE
     Indication: Heart transplant rejection
     Dosage: TAPERS
     Route: 065
  11. VEDOLIZUMAB [Suspect]
     Active Substance: VEDOLIZUMAB
     Indication: Immunosuppressant drug therapy
     Route: 065
  12. BUDESONIDE [Concomitant]
     Active Substance: BUDESONIDE

REACTIONS (1)
  - Epstein-Barr virus associated lymphoproliferative disorder [Recovered/Resolved]
